FAERS Safety Report 18128494 (Version 1)
Quarter: 2020Q3

REPORT INFORMATION
  Report Type: Spontaneous
  Country: IR (occurrence: IR)
  Receive Date: 20200810
  Receipt Date: 20200810
  Transmission Date: 20201103
  Serious: Yes (Hospitalization)
  Sender: FDA-Public Use
  Company Number: IR-LUPIN PHARMACEUTICALS INC.-2020-04341

PATIENT
  Age: 3 Decade
  Sex: Male
  Weight: 69 kg

DRUGS (12)
  1. FORTEO [Interacting]
     Active Substance: TERIPARATIDE
     Indication: OSTEOPOROSIS
     Dosage: 20 MICROGRAM QD
     Route: 058
     Dates: start: 20180302, end: 20181231
  2. AZATHIOPRINE. [Suspect]
     Active Substance: AZATHIOPRINE
     Indication: LUPUS NEPHRITIS
     Dosage: 2.5 MILLIGRAM/KILOGRAM QD
     Route: 065
  3. HYDROXYCHLOROQUINE [Interacting]
     Active Substance: HYDROXYCHLOROQUINE
     Dosage: 200 MILLIGRAM, QD
     Route: 065
  4. CALCIUM ACETATE. [Interacting]
     Active Substance: CALCIUM ACETATE
     Indication: LUPUS NEPHRITIS
     Dosage: UNK
     Route: 065
  5. CALCIUM ACETATE. [Interacting]
     Active Substance: CALCIUM ACETATE
     Indication: SUPPLEMENTATION THERAPY
  6. MYCOPHENOLATE MOFETIL. [Interacting]
     Active Substance: MYCOPHENOLATE MOFETIL
     Dosage: 500 MILLIGRAM, QD
     Route: 065
  7. PREDNISOLONE. [Interacting]
     Active Substance: PREDNISOLONE
     Indication: LUPUS NEPHRITIS
     Dosage: 15 MILLIGRAM, QD
     Route: 065
  8. PREDNISOLONE. [Interacting]
     Active Substance: PREDNISOLONE
     Dosage: 5 MILLIGRAM, QD
     Route: 065
  9. VITAMIN D [COLECALCIFEROL] [Interacting]
     Active Substance: CHOLECALCIFEROL
     Indication: LUPUS NEPHRITIS
     Dosage: UNK
     Route: 065
  10. VITAMIN D [COLECALCIFEROL] [Interacting]
     Active Substance: CHOLECALCIFEROL
     Indication: SUPPLEMENTATION THERAPY
  11. HYDROXYCHLOROQUINE [Suspect]
     Active Substance: HYDROXYCHLOROQUINE
     Indication: LUPUS NEPHRITIS
     Dosage: 400 MILLIGRAM, QD
     Route: 065
  12. MYCOPHENOLATE MOFETIL. [Interacting]
     Active Substance: MYCOPHENOLATE MOFETIL
     Indication: LUPUS NEPHRITIS
     Dosage: 2 GRAM, QD
     Route: 065

REACTIONS (4)
  - Drug interaction [Unknown]
  - Gastrointestinal disorder [Unknown]
  - Bone metabolism disorder [Recovering/Resolving]
  - Osteoporosis [Recovering/Resolving]

NARRATIVE: CASE EVENT DATE: 201812
